FAERS Safety Report 9750238 (Version 1)
Quarter: 2013Q4

REPORT INFORMATION
  Report Type: Spontaneous
  Country: US (occurrence: CA)
  Receive Date: 20131212
  Receipt Date: 20131212
  Transmission Date: 20140711
  Serious: Yes (Death)
  Sender: FDA-Public Use
  Company Number: CA-FRI-1000052170

PATIENT
  Sex: Female
  Weight: 76 kg

DRUGS (5)
  1. ROFLUMILAST [Suspect]
  2. SYMBICORT [Concomitant]
  3. SPIRIVA [Concomitant]
  4. SALBUTAMOL [Concomitant]
  5. THEOPHYLLINE [Concomitant]

REACTIONS (1)
  - Death [Fatal]
